FAERS Safety Report 24295958 (Version 1)
Quarter: 2024Q3

REPORT INFORMATION
  Report Type: Spontaneous
  Country: DE (occurrence: DE)
  Receive Date: 20240909
  Receipt Date: 20240909
  Transmission Date: 20241017
  Serious: Yes (Other)
  Sender: AUROBINDO
  Company Number: DE-PHARMALEX-2024000030

PATIENT
  Age: 58 Year
  Sex: Male

DRUGS (10)
  1. CLOZAPINE [Suspect]
     Active Substance: CLOZAPINE
     Indication: Schizophrenia
     Dosage: 200 MILLIGRAM, DAILY
     Route: 065
  2. ZUCLOPENTHIXOL [Concomitant]
     Active Substance: ZUCLOPENTHIXOL
     Indication: Antipsychotic therapy
     Dosage: 50 MILLIGRAM, DAILY
     Route: 065
  3. ZUCLOPENTHIXOL [Concomitant]
     Active Substance: ZUCLOPENTHIXOL
     Dosage: 75 MILLIGRAM, DAILY
     Route: 065
  4. PIPAMPERONE [Concomitant]
     Active Substance: PIPAMPERONE
     Indication: Antipsychotic therapy
     Dosage: 80 MILLIGRAM, DAILY
     Route: 065
  5. LEVETIRACETAM [Concomitant]
     Active Substance: LEVETIRACETAM
     Indication: Prophylaxis
     Dosage: 1000 MILLIGRAM, ONCE A DAY
     Route: 065
  6. MIRTAZAPINE [Concomitant]
     Active Substance: MIRTAZAPINE
     Indication: Antidepressant therapy
     Dosage: 15 MILLIGRAM, DAILY
     Route: 065
  7. SERTRALINE [Concomitant]
     Active Substance: SERTRALINE HYDROCHLORIDE
     Indication: Antidepressant therapy
     Dosage: 100 MILLIGRAM, DAILY ( FOR 5 DAYS)
     Route: 065
  8. LORAZEPAM [Concomitant]
     Active Substance: LORAZEPAM
     Indication: Prophylaxis
     Dosage: 2 MILLIGRAM, DAILY
     Route: 065
  9. HALOPERIDOL DECANOATE [Concomitant]
     Active Substance: HALOPERIDOL DECANOATE
     Indication: Schizophrenia
     Dosage: 100 MILLIGRAM  EVERY 4 WEEKS
     Route: 030
  10. OSELTAMIVIR [Concomitant]
     Active Substance: OSELTAMIVIR
     Indication: Influenza
     Dosage: 75 MILLIGRAM, ONCE A DAY
     Route: 065

REACTIONS (6)
  - Pneumonia viral [Unknown]
  - Sedation [Unknown]
  - Drug level increased [Unknown]
  - Antipsychotic drug level increased [Unknown]
  - Drug-disease interaction [Unknown]
  - Toxicity to various agents [Unknown]
